FAERS Safety Report 13079462 (Version 1)
Quarter: 2017Q1

REPORT INFORMATION
  Report Type: Spontaneous
  Country: ZA (occurrence: ZA)
  Receive Date: 20170103
  Receipt Date: 20170103
  Transmission Date: 20170428
  Serious: No
  Sender: FDA-Public Use
  Company Number: ZA-NOVEL LABORATORIES, INC-2016-05164

PATIENT
  Sex: 0

DRUGS (1)
  1. TEXA ALLERGY TABLETS [Suspect]
     Active Substance: CETIRIZINE HYDROCHLORIDE
     Indication: RHINITIS
     Route: 048

REACTIONS (2)
  - Drug ineffective [Unknown]
  - Product quality issue [None]
